FAERS Safety Report 15087958 (Version 2)
Quarter: 2018Q2

REPORT INFORMATION
  Report Type: Spontaneous
  Country: DE (occurrence: DE)
  Receive Date: 20180629
  Receipt Date: 20180629
  Transmission Date: 20180711
  Serious: Yes (Other)
  Sender: FDA-Public Use
  Company Number: DE-009507513-1806DEU009732

PATIENT
  Age: 29 Year
  Sex: Female

DRUGS (3)
  1. PERGOVERIS [Suspect]
     Active Substance: FOLLITROPIN\LUTROPIN ALFA
     Dosage: 137.5-150
     Route: 058
  2. ORGALUTRAN [Suspect]
     Active Substance: GANIRELIX ACETATE
     Dosage: 0.25 MG, UNK
     Route: 058
  3. TRIPTORELIN ACETATE [Suspect]
     Active Substance: TRIPTORELIN ACETATE
     Dosage: DAILY DOSE: 1 DF DOSAGE FORM EVERY TOTAL ; IN TOTAL
     Route: 058

REACTIONS (1)
  - Deep vein thrombosis [Not Recovered/Not Resolved]

NARRATIVE: CASE EVENT DATE: 20180512
